FAERS Safety Report 6436117-X (Version None)
Quarter: 2009Q4

REPORT INFORMATION
  Report Type: 
  Country: None (occurrence: None)
  Receive Date: 20091110
  Receipt Date: 20091110
  Transmission Date: 20100525
  Serious: No
  Sender: FDA-Public Use
  Company Number: None

PATIENT
  Age: 55 Year
  Sex: Female
  Weight: 92.0802 kg

DRUGS (2)
  1. DEPAKOTE [Suspect]
     Indication: BIPOLAR I DISORDER
     Dosage: 500 MG PO QHS
     Route: 048
  2. LAMICTAL [Concomitant]

REACTIONS (4)
  - MANIA [None]
  - MOOD SWINGS [None]
  - PRODUCT SUBSTITUTION ISSUE [None]
  - SYNOVIAL CYST [None]
